FAERS Safety Report 4583774-9 (Version None)
Quarter: 2005Q1

REPORT INFORMATION
  Report Type: 
  Country: None (occurrence: None)
  Receive Date: 20050216
  Receipt Date: 20050210
  Transmission Date: 20050727
  Serious: Yes (Hospitalization)
  Sender: FDA-Public Use
  Company Number: 200511301GDDC

PATIENT
  Age: 62 Year
  Sex: Female
  Weight: 29 kg

DRUGS (4)
  1. ENOXAPARIN SODIUM [Suspect]
     Indication: IMMOBILE
     Route: 058
     Dates: start: 20050114, end: 20050117
  2. DICLOFENAC [Concomitant]
     Indication: PAIN
     Route: 048
     Dates: start: 20050114, end: 20050124
  3. RANITIDINE [Concomitant]
     Route: 048
     Dates: start: 20050112
  4. MS CONTIN [Concomitant]
     Indication: PAIN
     Route: 048
     Dates: start: 20050112

REACTIONS (2)
  - CELLULITIS [None]
  - HAEMATOMA [None]
